FAERS Safety Report 25410559 (Version 2)
Quarter: 2025Q2

REPORT INFORMATION
  Report Type: Report from Study
  Country: JP (occurrence: JP)
  Receive Date: 20250608
  Receipt Date: 20250630
  Transmission Date: 20250717
  Serious: Yes (Hospitalization)
  Sender: PFIZER
  Company Number: JP-PFIZER INC-PV202400066751

PATIENT
  Age: 9 Year
  Sex: Female
  Weight: 32.6 kg

DRUGS (10)
  1. SIROLIMUS [Suspect]
     Active Substance: SIROLIMUS
     Indication: Lymphatic malformation
     Dosage: 2 MG, 1X/DAY
     Route: 048
     Dates: start: 20230212, end: 20230301
  2. SIROLIMUS [Suspect]
     Active Substance: SIROLIMUS
     Dosage: 2.5 MG, 1X/DAY
     Route: 048
     Dates: start: 20230302, end: 20241225
  3. SIROLIMUS [Suspect]
     Active Substance: SIROLIMUS
     Dosage: 2 MG, 1X/DAY
     Route: 048
     Dates: start: 20241226, end: 20250326
  4. SIROLIMUS [Suspect]
     Active Substance: SIROLIMUS
     Dosage: 2.5 MG, 1X/DAY
     Route: 048
     Dates: start: 20250327
  5. ATOMOXETINE [Concomitant]
     Active Substance: ATOMOXETINE
     Route: 048
     Dates: start: 20231214
  6. CEFMETAZOLE [Concomitant]
     Active Substance: CEFMETAZOLE
     Route: 042
     Dates: start: 20240806, end: 20240808
  7. PRECEDEX [Concomitant]
     Active Substance: DEXMEDETOMIDINE HYDROCHLORIDE
     Route: 065
     Dates: start: 20240806, end: 20240807
  8. FENTANYL [Concomitant]
     Active Substance: FENTANYL
     Route: 065
     Dates: start: 20240806, end: 20240806
  9. ACETAMINOPHEN [Concomitant]
     Active Substance: ACETAMINOPHEN
     Route: 065
     Dates: start: 20240806, end: 20240809
  10. LOXOPROFEN [Concomitant]
     Active Substance: LOXOPROFEN
     Route: 048
     Dates: start: 20240808, end: 20250129

REACTIONS (8)
  - Hemihypertrophy [Recovering/Resolving]
  - Disease progression [Recovering/Resolving]
  - Stomatitis [Not Recovered/Not Resolved]
  - Infection [Recovered/Resolved]
  - Gastroenteritis [Recovered/Resolved]
  - Sinusitis [Recovered/Resolved]
  - Rhinitis allergic [Recovered/Resolved]
  - Skin ulcer [Recovering/Resolving]

NARRATIVE: CASE EVENT DATE: 20230323
